FAERS Safety Report 10904342 (Version 1)
Quarter: 2015Q1

REPORT INFORMATION
  Report Type: Spontaneous
  Country: US (occurrence: US)
  Receive Date: 20150311
  Receipt Date: 20150311
  Transmission Date: 20150721
  Serious: Yes (Other)
  Sender: FDA-Public Use
  Company Number: US-ASTRAZENECA-2015SE20768

PATIENT
  Age: 62 Year
  Sex: Female
  Weight: 75.1 kg

DRUGS (19)
  1. ADVIL [Concomitant]
     Active Substance: IBUPROFEN
     Route: 048
  2. HYZAAR [Concomitant]
     Active Substance: HYDROCHLOROTHIAZIDE\LOSARTAN POTASSIUM
     Dosage: 50-12.5 MG, 1 DF DAILY
     Route: 048
  3. CALCIUM 500 + D [Concomitant]
     Active Substance: CALCIUM\VITAMIN D
     Dosage: 1-2 DF DAILY
     Route: 048
  4. FLONASE [Concomitant]
     Active Substance: FLUTICASONE PROPIONATE
     Dosage: 1 SPRAY DAILY
     Route: 045
  5. FOLVITE [Concomitant]
     Active Substance: FOLIC ACID
  6. MULTIVITAMIN [Concomitant]
     Active Substance: VITAMINS
     Route: 048
  7. ACETAMINOPHEN. [Concomitant]
     Active Substance: ACETAMINOPHEN
     Dosage: AS REQUIRED
     Route: 048
  8. MEVACOR [Concomitant]
     Active Substance: LOVASTATIN
     Route: 048
  9. FOLVITE [Concomitant]
     Active Substance: FOLIC ACID
     Route: 048
  10. ECOTRIN [Concomitant]
     Active Substance: ASPIRIN
     Route: 048
  11. ALLEGRA-D 24 [Concomitant]
     Dosage: 180-240 MG PER 24 HR
  12. PLAVIX [Concomitant]
     Active Substance: CLOPIDOGREL BISULFATE
     Route: 048
  13. VITAMIN D3 [Concomitant]
     Active Substance: CHOLECALCIFEROL
     Dosage: DAILY
     Route: 048
  14. COQ10 SG [Concomitant]
     Route: 048
  15. VITAMIN B12 [Concomitant]
     Active Substance: CYANOCOBALAMIN
     Route: 048
  16. PROCARDIA XL [Concomitant]
     Active Substance: NIFEDIPINE
  17. ARIMIDEX [Suspect]
     Active Substance: ANASTROZOLE
     Route: 048
     Dates: start: 201309, end: 201310
  18. ZESTORETIC [Suspect]
     Active Substance: HYDROCHLOROTHIAZIDE\LISINOPRIL
     Dosage: 10/12.5 MG
     Route: 048
  19. AROMASIN [Concomitant]
     Active Substance: EXEMESTANE
     Route: 048

REACTIONS (12)
  - Methylenetetrahydrofolate reductase gene mutation [Unknown]
  - Muscle disorder [Unknown]
  - Breast discolouration [Unknown]
  - Dizziness [Recovering/Resolving]
  - Musculoskeletal stiffness [Unknown]
  - Arthralgia [Unknown]
  - Pain in extremity [Unknown]
  - Cerebrovascular accident [Unknown]
  - Arthropathy [Unknown]
  - Osteopenia [Unknown]
  - Breast cancer [Unknown]
  - Hypercoagulation [Unknown]

NARRATIVE: CASE EVENT DATE: 201310
